FAERS Safety Report 16252506 (Version 2)
Quarter: 2019Q2

REPORT INFORMATION
  Report Type: Spontaneous
  Country: US (occurrence: US)
  Receive Date: 20190429
  Receipt Date: 20190528
  Transmission Date: 20190711
  Serious: Yes (Death, Hospitalization, Other)
  Sender: FDA-Public Use
  Company Number: US-BRISTOL-MYERS SQUIBB COMPANY-BMS-2019-042091

PATIENT
  Age: 71 Year
  Sex: Female

DRUGS (2)
  1. KENALOG-40 [Suspect]
     Active Substance: TRIAMCINOLONE ACETONIDE
     Indication: PAIN MANAGEMENT
     Dosage: 40 MG/ML
     Route: 042
     Dates: start: 20190423
  2. KENALOG-40 [Suspect]
     Active Substance: TRIAMCINOLONE ACETONIDE
     Indication: BURSITIS
     Route: 065

REACTIONS (7)
  - Cardiac arrest [Fatal]
  - Clostridial infection [Unknown]
  - Arthralgia [Unknown]
  - Product use issue [Unknown]
  - Bacterial infection [Unknown]
  - Infection [Unknown]
  - Skin infection [Unknown]

NARRATIVE: CASE EVENT DATE: 20190423
